FAERS Safety Report 15957952 (Version 2)
Quarter: 2019Q1

REPORT INFORMATION
  Report Type: Spontaneous
  Country: None (occurrence: JP)
  Receive Date: 20190213
  Receipt Date: 20190306
  Transmission Date: 20190417
  Serious: Yes (Other)
  Sender: FDA-Public Use
  Company Number: JP-LABORATOIRE HRA PHARMA-2062629

PATIENT
  Age: 72 Year
  Sex: Male

DRUGS (4)
  1. METOPIRONE [Suspect]
     Active Substance: METYRAPONE
     Indication: ECTOPIC ACTH SYNDROME
     Route: 048
  2. MEROPENEM. [Concomitant]
     Active Substance: MEROPENEM
     Dates: start: 20190119
  3. LANSOPRAZOLE. [Concomitant]
     Active Substance: LANSOPRAZOLE
  4. VANCOMYCIN HYDROCHLORIDE. [Concomitant]
     Active Substance: VANCOMYCIN HYDROCHLORIDE
     Dates: start: 20190119

REACTIONS (2)
  - Pancytopenia [Recovered/Resolved]
  - Meningitis [Unknown]

NARRATIVE: CASE EVENT DATE: 20190119
